FAERS Safety Report 7028872-5 (Version None)
Quarter: 2010Q4

REPORT INFORMATION
  Report Type: 
  Country: None (occurrence: None)
  Receive Date: 20101005
  Receipt Date: 20101004
  Transmission Date: 20110411
  Serious: Yes (Other)
  Sender: FDA-Public Use
  Company Number: US-BRISTOL-MYERS SQUIBB COMPANY-15315880

PATIENT
  Age: 69 Year
  Sex: Male
  Weight: 84 kg

DRUGS (3)
  1. COUMADIN [Suspect]
     Indication: THROMBOSIS
     Dates: start: 20100801
  2. ASPIRIN [Suspect]
     Indication: THROMBOSIS
  3. ENOXAPARIN SODIUM [Suspect]
     Indication: THROMBOSIS
     Dosage: INJECTION
     Dates: start: 20100823, end: 20100826

REACTIONS (1)
  - DEAFNESS UNILATERAL [None]
